FAERS Safety Report 5245628-4 (Version None)
Quarter: 2007Q1

REPORT INFORMATION
  Report Type: 
  Country: None (occurrence: None)
  Receive Date: 20070216
  Receipt Date: 20070201
  Transmission Date: 20070707
  Serious: Yes (Death, Other)
  Sender: FDA-Public Use
  Company Number: US-1160406

PATIENT
  Age: 84 Year
  Sex: Male

DRUGS (2)
  1. VIGAMOX [Suspect]
     Indication: PROPHYLAXIS
     Dosage: (OPHTHALMIC)
     Route: 047
     Dates: start: 20070110, end: 20070117
  2. BSS [Concomitant]

REACTIONS (1)
  - RUPTURED CEREBRAL ANEURYSM [None]
